FAERS Safety Report 16256774 (Version 2)
Quarter: 2019Q2

REPORT INFORMATION
  Report Type: Report from Study
  Country: US (occurrence: US)
  Receive Date: 20190430
  Receipt Date: 20190501
  Transmission Date: 20190711
  Serious: Yes (Hospitalization, Other)
  Sender: FDA-Public Use
  Company Number: US-BAUSCH-BL-2019-012704

PATIENT
  Sex: Male

DRUGS (5)
  1. CUPRIMINE [Suspect]
     Active Substance: PENICILLAMINE
     Route: 065
  2. CUPRIMINE [Suspect]
     Active Substance: PENICILLAMINE
     Dosage: SOMETIMES THE PATIENT WILL HAVE 7-8 HOURS BETWEEN DOSES
     Route: 065
  3. CUPRIMINE [Suspect]
     Active Substance: PENICILLAMINE
     Indication: HEPATO-LENTICULAR DEGENERATION
     Route: 065
  4. SYPRINE [Suspect]
     Active Substance: TRIENTINE HYDROCHLORIDE
     Indication: HEPATO-LENTICULAR DEGENERATION
     Route: 065
  5. CUPRIMINE [Suspect]
     Active Substance: PENICILLAMINE
     Route: 065

REACTIONS (11)
  - Inappropriate schedule of product administration [Unknown]
  - Gallbladder disorder [Not Recovered/Not Resolved]
  - Insurance issue [Unknown]
  - Urinary tract infection [Not Recovered/Not Resolved]
  - Liver disorder [Not Recovered/Not Resolved]
  - Therapy cessation [Unknown]
  - Kidney infection [Unknown]
  - Nephrolithiasis [Unknown]
  - Nausea [Unknown]
  - Vomiting [Unknown]
  - Wrong technique in product usage process [Unknown]

NARRATIVE: CASE EVENT DATE: 2019
